FAERS Safety Report 8999647 (Version 1)
Quarter: 2013Q1

REPORT INFORMATION
  Report Type: Spontaneous
  Country: FR (occurrence: FR)
  Receive Date: 20130102
  Receipt Date: 20130102
  Transmission Date: 20140127
  Serious: Yes (Hospitalization, Other)
  Sender: FDA-Public Use
  Company Number: FR-ASTRAZENECA-2012SE95313

PATIENT
  Age: 32616 Day
  Sex: Female

DRUGS (5)
  1. ATACAND [Suspect]
     Indication: HYPERTENSION
     Route: 048
  2. PAROXETINE BASE [Suspect]
     Indication: DEPRESSION
     Dosage: 20 MG
     Route: 048
     Dates: start: 20121020, end: 20121031
  3. LANZOPRAZOLE [Suspect]
     Route: 048
     Dates: start: 20121026, end: 20121031
  4. BIPERIDYS [Suspect]
     Route: 048
     Dates: start: 20121026, end: 20121031
  5. ZOPICLONE [Concomitant]
     Route: 048

REACTIONS (9)
  - Hyponatraemia [Recovered/Resolved]
  - Hypertension [Unknown]
  - Drug ineffective [Unknown]
  - Nausea [Unknown]
  - Dyspepsia [Unknown]
  - Hallucination [Unknown]
  - Asthenia [Unknown]
  - Pyrexia [Unknown]
  - Depressed mood [Unknown]
